FAERS Safety Report 23379466 (Version 2)
Quarter: 2024Q1

REPORT INFORMATION
  Report Type: Spontaneous
  Country: US (occurrence: US)
  Receive Date: 20240108
  Receipt Date: 20240221
  Transmission Date: 20240410
  Serious: No
  Sender: FDA-Public Use
  Company Number: US-PFIZER INC-202300457883

PATIENT
  Age: 72 Year
  Sex: Female
  Weight: 114.31 kg

DRUGS (1)
  1. PAXLOVID [Suspect]
     Active Substance: NIRMATRELVIR\RITONAVIR
     Indication: COVID-19 treatment
     Dosage: [NIRMATRELVIR 150 MG]/[RITONAVIR 100 MG]; 2X/DAY
     Route: 048
     Dates: start: 20231226

REACTIONS (8)
  - Dysgeusia [Unknown]
  - Faeces pale [Unknown]
  - Nausea [Unknown]
  - Tongue coated [Unknown]
  - Candida infection [Unknown]
  - Oropharyngeal discomfort [Unknown]
  - Malaise [Unknown]
  - Feeling jittery [Unknown]
